FAERS Safety Report 8050788-6 (Version None)
Quarter: 2012Q1

REPORT INFORMATION
  Report Type: 
  Country: None (occurrence: None)
  Receive Date: 20120117
  Receipt Date: 20111201
  Transmission Date: 20120608
  Serious: Yes (Hospitalization, Other)
  Sender: FDA-Public Use
  Company Number: SE-ABBOTT-11P-150-0879989-00

PATIENT
  Sex: Female

DRUGS (7)
  1. HUMIRA [Suspect]
     Indication: ANKYLOSING SPONDYLITIS
     Route: 058
     Dates: start: 20110130, end: 20110213
  2. ACETAMINOPHEN [Concomitant]
     Indication: PAIN
     Route: 048
  3. HUMIRA [Suspect]
     Dates: start: 20110901
  4. PREDNISOLONE [Concomitant]
     Indication: ANKYLOSING SPONDYLITIS
     Route: 048
  5. FOLIC ACID [Concomitant]
     Indication: PRODUCT USED FOR UNKNOWN INDICATION
     Route: 048
  6. METOPROLOL TARTRATE [Concomitant]
     Indication: HYPERTENSION
     Route: 048
  7. ZANTAC [Concomitant]
     Indication: PRODUCT USED FOR UNKNOWN INDICATION
     Route: 048

REACTIONS (9)
  - PROTEINURIA [None]
  - POSTOPERATIVE WOUND INFECTION [None]
  - ASTHMA [None]
  - PRE-ECLAMPSIA [None]
  - ENDOTRACHEAL INTUBATION COMPLICATION [None]
  - HEADACHE [None]
  - DYSPNOEA [None]
  - BLOOD PRESSURE INCREASED [None]
  - OEDEMA PERIPHERAL [None]
